FAERS Safety Report 5968829-6 (Version None)
Quarter: 2008Q4

REPORT INFORMATION
  Report Type: 
  Country: None (occurrence: None)
  Receive Date: 20081125
  Receipt Date: 20081125
  Transmission Date: 20090506
  Serious: Yes (Death)
  Sender: FDA-Public Use
  Company Number: None

PATIENT
  Sex: Female
  Weight: 68.4932 kg

DRUGS (1)
  1. ISOVUE-370 [Suspect]
     Indication: CARDIOVASCULAR DISORDER
     Dosage: 60ML ONCE IV
     Route: 042
     Dates: start: 20081024, end: 20081024

REACTIONS (3)
  - ANAPHYLACTIC REACTION [None]
  - DIALYSIS [None]
  - RESPIRATORY FAILURE [None]
